FAERS Safety Report 8282921-5 (Version None)
Quarter: 2012Q2

REPORT INFORMATION
  Report Type: 
  Country: None (occurrence: None)
  Receive Date: 20120413
  Receipt Date: 20120411
  Transmission Date: 20120825
  Serious: Yes (Death, Disabling)
  Sender: FDA-Public Use
  Company Number: DE-GENZYME-CAMP-1001917

PATIENT
  Age: 59 Year
  Sex: Female

DRUGS (5)
  1. DOXORUBICIN HCL [Suspect]
     Indication: T-CELL LYMPHOMA
     Dosage: 100 MG, ONCE
     Route: 042
     Dates: start: 20110916, end: 20110916
  2. VINCRISTINE [Suspect]
     Indication: T-CELL LYMPHOMA
     Dosage: 2 MG, ONCE
     Route: 042
     Dates: start: 20110916, end: 20110916
  3. CAMPATH [Suspect]
     Indication: T-CELL LYMPHOMA
     Dosage: 30 MG, ONCE
     Route: 058
     Dates: start: 20110916, end: 20110916
  4. CYCLOPHOSPHAMIDE [Suspect]
     Indication: T-CELL LYMPHOMA
     Dosage: 1500 MG, ONCE
     Route: 042
     Dates: start: 20110916, end: 20110916
  5. PREDNISONE TAB [Suspect]
     Indication: T-CELL LYMPHOMA
     Dosage: 100 MG, QDX5
     Route: 048
     Dates: start: 20110916, end: 20110920

REACTIONS (3)
  - T-CELL LYMPHOMA [None]
  - RESPIRATORY FAILURE [None]
  - RENAL FAILURE [None]
